FAERS Safety Report 4969280-8 (Version None)
Quarter: 2006Q2

REPORT INFORMATION
  Report Type: 
  Country: None (occurrence: None)
  Receive Date: 20060405
  Receipt Date: 20060322
  Transmission Date: 20061013
  Serious: Yes (Hospitalization, Other)
  Sender: FDA-Public Use
  Company Number: USA-2002-0002721

PATIENT
  Age: 44 Year
  Sex: Male
  Weight: 99.5 kg

DRUGS (50)
  1. OXYCONTIN [Suspect]
     Indication: PAIN
     Dosage: 20 MG, Q8H, ORAL
     Route: 048
     Dates: start: 19960322
  2. OXYCODONE HCL [Concomitant]
  3. MORPHINE SULFATE [Concomitant]
  4. SEROKOT-S (DOCUSATE SODIUM, SENNOSIDE A+B) [Concomitant]
  5. COLACE CAPSULES (DOCUSATE SODIUM) [Concomitant]
  6. METHADONE [Concomitant]
  7. IMITREX [Concomitant]
  8. RITALIN [Concomitant]
  9. ULTRAM [Concomitant]
  10. PROZAC [Concomitant]
  11. KLONOPIN [Concomitant]
  12. VISTARIL (HYDROXYZINE EMBONATE) [Concomitant]
  13. LIDOCAINE SPRAY (LIDOCAINE) [Concomitant]
  14. PERCOCET [Concomitant]
  15. MARCAINE [Concomitant]
  16. DILAUDID [Concomitant]
  17. TYLENOL (CAPLET) [Concomitant]
  18. ANCEF [Concomitant]
  19. LEVORPHANOL (LEVORPHANOL) [Concomitant]
  20. ACTIQ [Concomitant]
  21. VALIUM [Concomitant]
  22. DEXTROSTAT [Concomitant]
  23. DULCOLAX [Concomitant]
  24. ASPIRIN [Concomitant]
  25. IRON [Concomitant]
  26. LOVENOX [Concomitant]
  27. DESYREL [Concomitant]
  28. ROXICODONE [Concomitant]
  29. ORUVAIL [Concomitant]
  30. BACLOFEN [Concomitant]
  31. SOMA [Concomitant]
  32. CATAPRES-TTS-1 [Concomitant]
  33. SKELAXIN [Concomitant]
  34. NADOLOL [Concomitant]
  35. TRILISATE (MAGNESIUM SALICYLATE) [Concomitant]
  36. AMOXIL [Concomitant]
  37. ZOSTRIX (CAPSAICIN) [Concomitant]
  38. FOSAMAX [Concomitant]
  39. NEURONTIN [Concomitant]
  40. HYDROXYZINE PAMOATE [Concomitant]
  41. CELEBREX [Concomitant]
  42. PROVIGIL [Concomitant]
  43. WELLBUTRIN SR [Concomitant]
  44. TRAZODONE HCL [Concomitant]
  45. DOSTINEX [Concomitant]
  46. LACTULOSE [Concomitant]
  47. RHINOCORT [Concomitant]
  48. PREVACID [Concomitant]
  49. MIACALCIN [Concomitant]
  50. BEXTRA [Concomitant]

REACTIONS (49)
  - ADJUSTMENT DISORDER WITH DEPRESSED MOOD [None]
  - AFFECTIVE DISORDER [None]
  - ANOREXIA [None]
  - ANXIETY [None]
  - ATELECTASIS [None]
  - BLOOD FOLLICLE STIMULATING HORMONE DECREASED [None]
  - BLOOD LUTEINISING HORMONE DECREASED [None]
  - BLOOD TESTOSTERONE FREE DECREASED [None]
  - BODY HEIGHT DECREASED [None]
  - BONE DENSITY DECREASED [None]
  - CELLULITIS [None]
  - CONSTIPATION [None]
  - DEPRESSION [None]
  - DISTURBANCE IN ATTENTION [None]
  - DIZZINESS [None]
  - DRUG DEPENDENCE [None]
  - DRUG TOLERANCE [None]
  - DRUG WITHDRAWAL SYNDROME [None]
  - DYSPNOEA [None]
  - FALL [None]
  - FATIGUE [None]
  - FEELING COLD [None]
  - GROIN PAIN [None]
  - HYPERSOMNIA [None]
  - HYPOAESTHESIA [None]
  - INADEQUATE ANALGESIA [None]
  - INCONTINENCE [None]
  - INSOMNIA [None]
  - LETHARGY [None]
  - MUSCLE SPASMS [None]
  - MYOFASCIAL PAIN SYNDROME [None]
  - NAUSEA [None]
  - NERVOUSNESS [None]
  - NIGHT SWEATS [None]
  - PAIN [None]
  - PITUITARY TUMOUR BENIGN [None]
  - POST PROCEDURAL COMPLICATION [None]
  - PRURITUS [None]
  - PYREXIA [None]
  - RADICULOPATHY [None]
  - SEDATION [None]
  - SINUSITIS [None]
  - SOMNOLENCE [None]
  - SPEECH DISORDER [None]
  - TEMPERATURE INTOLERANCE [None]
  - TREMOR [None]
  - VISION BLURRED [None]
  - VOMITING [None]
  - WHEEZING [None]
